FAERS Safety Report 4966419-5 (Version None)
Quarter: 2006Q2

REPORT INFORMATION
  Report Type: 
  Country: None (occurrence: None)
  Receive Date: 20060407
  Receipt Date: 20060330
  Transmission Date: 20061013
  Serious: Yes (Hospitalization)
  Sender: FDA-Public Use
  Company Number: JP-ROCHE-442896

PATIENT
  Age: 55 Year
  Sex: Male
  Weight: 64 kg

DRUGS (4)
  1. ROCEPHIN [Suspect]
     Indication: PYREXIA
     Dosage: REPORTED ADDITIONAL INDICATION FOR INFECTION.
     Route: 041
     Dates: start: 20060309, end: 20060314
  2. KETEK [Suspect]
     Indication: PYREXIA
     Route: 048
     Dates: start: 20060309, end: 20060314
  3. LOXONIN [Suspect]
     Indication: PYREXIA
     Route: 048
     Dates: start: 20060309, end: 20060314
  4. VOLTAREN [Suspect]
     Indication: PYREXIA
     Route: 048
     Dates: start: 20060309, end: 20060314

REACTIONS (2)
  - ERYTHEMA NODOSUM [None]
  - HYPERTHERMIA [None]
